FAERS Safety Report 8617131-2 (Version None)
Quarter: 2012Q3

REPORT INFORMATION
  Report Type: 
  Country: None (occurrence: None)
  Receive Date: 20120823
  Receipt Date: 20120820
  Transmission Date: 20120928
  Serious: No
  Sender: FDA-Public Use
  Company Number: US-PFIZER INC-2012170837

PATIENT
  Age: 45 Year
  Sex: Female
  Weight: 55.782 kg

DRUGS (2)
  1. LEVOTHYROXINE [Concomitant]
     Indication: HYPOTHYROIDISM
     Dosage: 125 UG, DAILY
  2. EPINEPHRINE [Suspect]
     Indication: ALLERGY TO ARTHROPOD STING
     Dosage: 0.3 MG, DAILY
     Dates: start: 20110701, end: 20110101

REACTIONS (1)
  - DERMATITIS ALLERGIC [None]
